FAERS Safety Report 12844672 (Version 1)
Quarter: 2016Q4

REPORT INFORMATION
  Report Type: Spontaneous
  Country: FR (occurrence: FR)
  Receive Date: 20161013
  Receipt Date: 20161013
  Transmission Date: 20170207
  Serious: Yes (Other)
  Sender: FDA-Public Use
  Company Number: FR-PFIZER INC-2016473383

PATIENT
  Age: 42 Year
  Sex: Female

DRUGS (7)
  1. XANAX [Suspect]
     Active Substance: ALPRAZOLAM
  2. TERCIAN /00759301/ [Suspect]
     Active Substance: CYAMEMAZINE
  3. HALDOL [Suspect]
     Active Substance: HALOPERIDOL
  4. DEROXAT [Suspect]
     Active Substance: PAROXETINE HYDROCHLORIDE
  5. THERALENE [Suspect]
     Active Substance: TRIMEPRAZINE
  6. LEPTICUR [Suspect]
     Active Substance: TROPATEPINE HYDROCHLORIDE
  7. IMOVANE [Suspect]
     Active Substance: ZOPICLONE

REACTIONS (3)
  - Gestational diabetes [Unknown]
  - Hepatocellular injury [Unknown]
  - Cholestasis [Unknown]
